FAERS Safety Report 22320898 (Version 1)
Quarter: 2023Q2

REPORT INFORMATION
  Report Type: Spontaneous
  Country: US (occurrence: US)
  Receive Date: 20230515
  Receipt Date: 20230515
  Transmission Date: 20230721
  Serious: No
  Sender: FDA-Public Use
  Company Number: US-GILEAD-2023-0621637

PATIENT
  Age: 84 Year
  Sex: Female
  Weight: 34.014 kg

DRUGS (21)
  1. VEKLURY [Suspect]
     Active Substance: REMDESIVIR
     Indication: COVID-19 pneumonia
     Dosage: 200 MG
     Route: 041
     Dates: start: 20230323, end: 20230323
  2. VEKLURY [Suspect]
     Active Substance: REMDESIVIR
     Dosage: 100 MG, QD
     Route: 041
     Dates: start: 20230324, end: 20230325
  3. ACETAMINOPHEN [Concomitant]
     Active Substance: ACETAMINOPHEN
  4. ALBUTEROL SULFATE [Concomitant]
     Active Substance: ALBUTEROL SULFATE
  5. COMBIVENT [Concomitant]
     Active Substance: ALBUTEROL SULFATE\IPRATROPIUM BROMIDE
  6. ATORVASTATIN [Concomitant]
     Active Substance: ATORVASTATIN
  7. AZITHROMYCIN [Concomitant]
     Active Substance: AZITHROMYCIN
  8. CARVEDILOL [Concomitant]
     Active Substance: CARVEDILOL
  9. CEFTRIAXONE [Concomitant]
     Active Substance: CEFTRIAXONE
  10. DEXAMETHASONE [Concomitant]
     Active Substance: DEXAMETHASONE
  11. FAMOTIDINE [Concomitant]
     Active Substance: FAMOTIDINE
  12. HEPARIN [Concomitant]
     Active Substance: HEPARIN SODIUM
  13. NOVOLOG [Concomitant]
     Active Substance: INSULIN ASPART
  14. LISINOPRIL [Concomitant]
     Active Substance: LISINOPRIL
  15. METHIMAZOLE [Concomitant]
     Active Substance: METHIMAZOLE
  16. MIRTAZAPINE [Concomitant]
     Active Substance: MIRTAZAPINE
  17. NICOTINE [Concomitant]
     Active Substance: NICOTINE
  18. ONDANSETRON [Concomitant]
     Active Substance: ONDANSETRON
  19. PANTOPRAZOLE [Concomitant]
     Active Substance: PANTOPRAZOLE
  20. SITAGLIPTIN [Concomitant]
     Active Substance: SITAGLIPTIN
  21. SODIUM CHLORIDE [Concomitant]
     Active Substance: SODIUM CHLORIDE

REACTIONS (1)
  - Off label use [Recovered/Resolved]
